FAERS Safety Report 24740036 (Version 1)
Quarter: 2024Q4

REPORT INFORMATION
  Report Type: Other
  Country: IN (occurrence: TR)
  Receive Date: 20241216
  Receipt Date: 20241216
  Transmission Date: 20250115
  Serious: Yes (Hospitalization, Other)
  Sender: BRECKENRIDGE PHARMACEUTICAL, INC.
  Company Number: TR-Breckenridge Pharmaceutical, Inc.-2167233

PATIENT
  Age: 16 Year
  Sex: Male
  Weight: 78 kg

DRUGS (1)
  1. ARIPIPRAZOLE [Suspect]
     Active Substance: ARIPIPRAZOLE
     Indication: Attention deficit hyperactivity disorder

REACTIONS (2)
  - Hypertension [Recovered/Resolved]
  - Primary hyperaldosteronism [Recovered/Resolved]
